FAERS Safety Report 5546742-6 (Version None)
Quarter: 2007Q4

REPORT INFORMATION
  Report Type: 
  Country: None (occurrence: None)
  Receive Date: 20071207
  Receipt Date: 20071207
  Transmission Date: 20080405
  Serious: Yes (Hospitalization)
  Sender: FDA-Public Use
  Company Number: None

PATIENT

DRUGS (3)
  1. TAXOTERE [Suspect]
     Dosage: 154.5 MG
     Dates: end: 20071119
  2. PREDNISONE [Suspect]
     Dosage: 70 MG
     Dates: end: 20071125
  3. DEXAMETHASONE TAB [Suspect]
     Dosage: 68 MG
     Dates: end: 20071120

REACTIONS (12)
  - ATELECTASIS [None]
  - BACK PAIN [None]
  - BACTERIAL INFECTION [None]
  - BLOOD PRESSURE DECREASED [None]
  - BLOOD PRESSURE DIASTOLIC INCREASED [None]
  - CHEST DISCOMFORT [None]
  - DIARRHOEA [None]
  - FEBRILE NEUTROPENIA [None]
  - HEADACHE [None]
  - HYPERSENSITIVITY [None]
  - PNEUMONITIS [None]
  - THROAT TIGHTNESS [None]
